FAERS Safety Report 4787296-1 (Version None)
Quarter: 2005Q3

REPORT INFORMATION
  Report Type: 
  Country: None (occurrence: None)
  Receive Date: 20050926
  Receipt Date: 20050621
  Transmission Date: 20060218
  Serious: No
  Sender: FDA-Public Use
  Company Number: 215517

PATIENT
  Age: 76 Year
  Sex: Male
  Weight: 82.5 kg

DRUGS (4)
  1. AVASTIN [Suspect]
     Indication: COLORECTAL CANCER
     Dosage: 410 MG, Q2W, INTRAVENOUS
     Route: 042
     Dates: start: 20050510
  2. ZOFRAN [Concomitant]
  3. FLUOROURACIL [Concomitant]
  4. LEUCOVORIN CALCIUM [Concomitant]

REACTIONS (2)
  - PRURITUS [None]
  - RASH MACULO-PAPULAR [None]
